FAERS Safety Report 23712719 (Version 1)
Quarter: 2024Q2

REPORT INFORMATION
  Report Type: Spontaneous
  Country: GB (occurrence: GB)
  Receive Date: 20240405
  Receipt Date: 20240405
  Transmission Date: 20240716
  Serious: Yes (Other)
  Sender: FDA-Public Use
  Company Number: GB-ANIPHARMA-2024-UK-000065

PATIENT
  Age: 49 Year
  Sex: Male
  Weight: 123 kg

DRUGS (4)
  1. CANDESARTAN [Suspect]
     Active Substance: CANDESARTAN
     Indication: Ill-defined disorder
     Dates: start: 20240328
  2. BENDROFLUMETHIAZIDE [Concomitant]
     Active Substance: BENDROFLUMETHIAZIDE
     Dosage: TAKE ONE EACH MORNING
     Dates: start: 20230127
  3. LANSOPRAZOLE [Concomitant]
     Active Substance: LANSOPRAZOLE
     Dosage: TAKE ONE DAILY
     Dates: start: 20230127
  4. SILDENAFIL [Concomitant]
     Active Substance: SILDENAFIL
     Dosage: ONE TO BE TAKEN APPROXIMATELY ONE HOUR BEFORE S...
     Dates: start: 20240328

REACTIONS (1)
  - Erectile dysfunction [Unknown]

NARRATIVE: CASE EVENT DATE: 20240328
